FAERS Safety Report 4526875-3 (Version None)
Quarter: 2004Q4

REPORT INFORMATION
  Report Type: 
  Country: None (occurrence: None)
  Receive Date: 20041213
  Receipt Date: 20041126
  Transmission Date: 20050328
  Serious: Yes (Disabling)
  Sender: FDA-Public Use
  Company Number: 2004AP06076

PATIENT
  Age: 77 Year
  Sex: Female

DRUGS (5)
  1. DIPRIVAN [Suspect]
     Indication: GENERAL ANAESTHESIA
     Dosage: 350 MG DAILY IV
     Route: 042
     Dates: start: 20041125, end: 20041125
  2. MUSCULAX [Suspect]
     Dosage: 3 MG DAILY
     Route: 042
     Dates: start: 20041125, end: 20041125
  3. FENTANEST [Suspect]
     Dosage: 275 UG DAILY IV
     Route: 042
     Dates: start: 20041125, end: 20041125
  4. EPHEDRIN [Suspect]
     Indication: BLOOD PRESSURE DECREASED
     Dosage: 8 MG DAILY
     Dates: start: 20041125, end: 20041125
  5. CEFAZOLIN [Suspect]
     Dosage: 1 G DAILY IVD
     Dates: start: 20041125, end: 20041125

REACTIONS (5)
  - BLOOD PRESSURE FLUCTUATION [None]
  - HAEMATURIA [None]
  - MYOGLOBINURIA [None]
  - PROCEDURAL COMPLICATION [None]
  - RENAL FAILURE ACUTE [None]
